FAERS Safety Report 21494600 (Version 1)
Quarter: 2022Q4

REPORT INFORMATION
  Report Type: Spontaneous
  Country: US (occurrence: US)
  Receive Date: 20221021
  Receipt Date: 20221021
  Transmission Date: 20230112
  Serious: Yes (Hospitalization)
  Sender: FDA-Public Use
  Company Number: US-BRACCO-2022US02748

PATIENT
  Age: 56 Year
  Sex: Male

DRUGS (1)
  1. PROHANCE [Suspect]
     Active Substance: GADOTERIDOL
     Indication: Magnetic resonance imaging
     Dosage: 18 ML, SINGLE
     Route: 042
     Dates: start: 20220715, end: 20220715

REACTIONS (4)
  - Dyspnoea [Recovered/Resolved]
  - Defaecation urgency [Recovered/Resolved]
  - Cough [Recovered/Resolved]
  - Erythema [Recovered/Resolved]

NARRATIVE: CASE EVENT DATE: 20220715
